FAERS Safety Report 5040530-5 (Version None)
Quarter: 2006Q2

REPORT INFORMATION
  Report Type: 
  Country: None (occurrence: None)
  Receive Date: 20060627
  Receipt Date: 20060627
  Transmission Date: 20061013
  Serious: No
  Sender: FDA-Public Use
  Company Number: None

PATIENT
  Age: 44 Year
  Sex: Male
  Weight: 84.5 kg

DRUGS (1)
  1. LITHIUM CARBONATE [Suspect]
     Dosage: 600 MG BID PO
     Route: 048

REACTIONS (1)
  - HYPOTHYROIDISM [None]
